FAERS Safety Report 14559725 (Version 11)
Quarter: 2018Q4

REPORT INFORMATION
  Report Type: Report from Study
  Country: US (occurrence: US)
  Receive Date: 20180221
  Receipt Date: 20181024
  Transmission Date: 20190204
  Serious: Yes (Hospitalization, Other)
  Sender: FDA-Public Use
  Company Number: US-MALLINCKRODT-T201800016

PATIENT
  Sex: Female

DRUGS (2)
  1. REPOSITORY CORTICOTROPIN INJECTION [Suspect]
     Active Substance: CORTICOTROPIN
     Indication: FOCAL SEGMENTAL GLOMERULOSCLEROSIS
     Dosage: 80 UNITS / 1 ML, 2 TIMES PER WEEK (SATURDAY/WEDNESDAY)
     Route: 058
     Dates: start: 20170401
  2. REPOSITORY CORTICOTROPIN INJECTION [Suspect]
     Active Substance: CORTICOTROPIN
     Indication: PROTEINURIA
     Dosage: 80 UNITS / 1 ML, 2 TIMES PER WEEK (FRIDAY/TUESDAY AT NIGHT/EVENING)
     Route: 058

REACTIONS (29)
  - Dysgeusia [Unknown]
  - Dizziness [Unknown]
  - Decreased appetite [Unknown]
  - Tremor [Unknown]
  - Fluid retention [Unknown]
  - Visual impairment [Unknown]
  - Headache [Unknown]
  - Blood pressure increased [Not Recovered/Not Resolved]
  - Dyspnoea [Not Recovered/Not Resolved]
  - Ligament sprain [Unknown]
  - Influenza [Unknown]
  - Peripheral swelling [Not Recovered/Not Resolved]
  - Gout [Not Recovered/Not Resolved]
  - Nervousness [Unknown]
  - Skin discolouration [Not Recovered/Not Resolved]
  - Pneumonia [Unknown]
  - Diabetes mellitus [Unknown]
  - Renal impairment [Unknown]
  - Malaise [Unknown]
  - Fatigue [Unknown]
  - Back pain [Unknown]
  - Focal segmental glomerulosclerosis [Unknown]
  - Productive cough [Unknown]
  - Herpes zoster [Not Recovered/Not Resolved]
  - Disease progression [Unknown]
  - Bronchitis [Recovering/Resolving]
  - Flatulence [Unknown]
  - Confusional state [Unknown]
  - Asthenia [Not Recovered/Not Resolved]
